FAERS Safety Report 15765171 (Version 2)
Quarter: 2019Q1

REPORT INFORMATION
  Report Type: Spontaneous
  Country: US (occurrence: US)
  Receive Date: 20181227
  Receipt Date: 20190102
  Transmission Date: 20190417
  Serious: Yes (Hospitalization, Other)
  Sender: FDA-Public Use
  Company Number: US-PCCINC-T201702112

PATIENT

DRUGS (6)
  1. GABLOFEN [Suspect]
     Active Substance: BACLOFEN
     Dosage: 71.97 ?G, QD
     Route: 037
     Dates: start: 20161228
  2. GABLOFEN [Suspect]
     Active Substance: BACLOFEN
     Indication: MUSCLE SPASTICITY
     Dosage: UNK
     Route: 037
  3. BACLOFEN. [Concomitant]
     Active Substance: BACLOFEN
     Dosage: 20 MG, TID
     Route: 048
  4. GABLOFEN [Suspect]
     Active Substance: BACLOFEN
     Indication: MUSCLE SPASTICITY
     Dosage: 59.92 ?G, QD
     Route: 037
     Dates: start: 20161209
  5. GABLOFEN [Suspect]
     Active Substance: BACLOFEN
     Dosage: 49.79 ?G, QD
     Route: 037
     Dates: start: 20161228
  6. ZOFRAN [Concomitant]
     Active Substance: ONDANSETRON HYDROCHLORIDE
     Dosage: 4 MG, 5X PER DAY

REACTIONS (7)
  - Dysarthria [Unknown]
  - Speech disorder [Unknown]
  - Seizure [Unknown]
  - Dysphagia [Unknown]
  - Dyspnoea [Unknown]
  - Muscle spasticity [Unknown]
  - Mental status changes [Unknown]
